FAERS Safety Report 19108373 (Version 1)
Quarter: 2021Q2

REPORT INFORMATION
  Report Type: Spontaneous
  Country: US (occurrence: US)
  Receive Date: 20210408
  Receipt Date: 20210408
  Transmission Date: 20210717
  Serious: No
  Sender: FDA-Public Use
  Company Number: None

PATIENT
  Age: 53 Year
  Sex: Female
  Weight: 58.5 kg

DRUGS (1)
  1. SUN BUM SUNSCREEN LIP BALM BROAD SPECTRUM SPF 30 MANGO [Suspect]
     Active Substance: AVOBENZONE\HOMOSALATE\OCTINOXATE\OCTISALATE
     Indication: LIP DRY
     Route: 061
     Dates: start: 20190601, end: 20190603

REACTIONS (4)
  - Lip swelling [None]
  - Lip exfoliation [None]
  - Cheilitis [None]
  - Lip erythema [None]

NARRATIVE: CASE EVENT DATE: 20190601
